FAERS Safety Report 5136226-1 (Version None)
Quarter: 2006Q4

REPORT INFORMATION
  Report Type: 
  Country: None (occurrence: None)
  Receive Date: 20061027
  Receipt Date: 20061016
  Transmission Date: 20070319
  Serious: Yes (Other)
  Sender: FDA-Public Use
  Company Number: US-ROCHE-467709

PATIENT
  Age: 62 Year
  Sex: Female

DRUGS (2)
  1. BONIVA [Suspect]
     Indication: BONE DENSITY DECREASED
     Route: 048
     Dates: start: 20060415, end: 20060615
  2. UNKNOWN MEDICATION FOR PAIN [Concomitant]
     Indication: BACK DISORDER
     Route: 048

REACTIONS (1)
  - OSTEONECROSIS [None]
